FAERS Safety Report 5015859-7 (Version None)
Quarter: 2006Q2

REPORT INFORMATION
  Report Type: 
  Country: None (occurrence: None)
  Receive Date: 20060601
  Receipt Date: 20060516
  Transmission Date: 20061013
  Serious: Yes (Hospitalization)
  Sender: FDA-Public Use
  Company Number: MX-BRISTOL-MYERS SQUIBB COMPANY-13385935

PATIENT
  Age: 73 Year
  Sex: Male

DRUGS (1)
  1. TEQUIN [Suspect]
     Indication: SKIN INFECTION
     Dates: start: 20060301

REACTIONS (3)
  - BLOOD GLUCOSE ABNORMAL [None]
  - CONCUSSION [None]
  - CONVULSION [None]
